FAERS Safety Report 23356424 (Version 1)
Quarter: 2024Q1

REPORT INFORMATION
  Report Type: Other
  Country: CO (occurrence: CO)
  Receive Date: 20240102
  Receipt Date: 20240102
  Transmission Date: 20240410
  Serious: Yes (Hospitalization)
  Sender: FDA-Public Use
  Company Number: CO-002147023-PHHY2018CO118872

PATIENT
  Age: 65 Year
  Sex: Female
  Weight: 64 kg

DRUGS (8)
  1. XOLAIR [Suspect]
     Active Substance: OMALIZUMAB
     Indication: Asthma
     Dosage: UNK
     Route: 058
     Dates: start: 20160913
  2. XOLAIR [Suspect]
     Active Substance: OMALIZUMAB
     Dosage: 300 MG, QMO
     Route: 058
  3. XOLAIR [Suspect]
     Active Substance: OMALIZUMAB
     Route: 058
     Dates: start: 20180910
  4. XOLAIR [Suspect]
     Active Substance: OMALIZUMAB
     Route: 058
     Dates: start: 20231128
  5. MONTELUKAST SODIUM [Concomitant]
     Active Substance: MONTELUKAST SODIUM
     Indication: Asthma
  6. SERETIDE [Concomitant]
     Active Substance: FLUTICASONE PROPIONATE\SALMETEROL XINAFOATE
     Indication: Asthma
     Dosage: 2 DF, QD (IN THE MORNING AND AT NIGHT)
     Route: 055
  7. ALBUTEROL [Concomitant]
     Active Substance: ALBUTEROL
     Indication: Asthma
     Dosage: UNK
     Route: 055
  8. NIFEDIPINE [Concomitant]
     Active Substance: NIFEDIPINE
     Indication: Hypertension
     Dosage: 1 DF, QD
     Route: 048

REACTIONS (8)
  - Respiratory disorder [Unknown]
  - Asthmatic crisis [Recovering/Resolving]
  - Ill-defined disorder [Unknown]
  - Immunodeficiency [Unknown]
  - Oxygen saturation decreased [Unknown]
  - Fatigue [Recovered/Resolved]
  - Illness [Recovered/Resolved]
  - Product supply issue [Unknown]

NARRATIVE: CASE EVENT DATE: 20180901
